FAERS Safety Report 20532693 (Version 5)
Quarter: 2022Q3

REPORT INFORMATION
  Report Type: Report from Study
  Country: US (occurrence: US)
  Receive Date: 20220301
  Receipt Date: 20220708
  Transmission Date: 20221027
  Serious: Yes (Hospitalization, Other)
  Sender: FDA-Public Use
  Company Number: US-PFIZER INC-202200010303

PATIENT
  Age: 69 Year
  Sex: Female

DRUGS (4)
  1. IBRANCE [Suspect]
     Active Substance: PALBOCICLIB
     Indication: Breast cancer female
     Dosage: (21 DAYS ON AND OFF 7 DAYS)
     Route: 048
     Dates: start: 20211207
  2. IBRANCE [Suspect]
     Active Substance: PALBOCICLIB
     Dosage: (21 DAYS ON AND OFF 7 DAYS)
     Route: 048
     Dates: start: 20220428
  3. IBRANCE [Suspect]
     Active Substance: PALBOCICLIB
     Dosage: (14 DAYS ON AND 7 DAYS OFF)
     Route: 048
     Dates: start: 202206
  4. FASLODEX [Concomitant]
     Active Substance: FULVESTRANT
     Dosage: UNK
     Route: 030

REACTIONS (9)
  - White blood cell count decreased [Unknown]
  - Hepatic enzyme increased [Unknown]
  - Neutrophil count decreased [Unknown]
  - Viral infection [Unknown]
  - Chills [Unknown]
  - Pyrexia [Unknown]
  - Fatigue [Not Recovered/Not Resolved]
  - Full blood count abnormal [Unknown]
  - Tumour marker increased [Recovering/Resolving]

NARRATIVE: CASE EVENT DATE: 20211207
